FAERS Safety Report 7977864-8 (Version None)
Quarter: 2011Q4

REPORT INFORMATION
  Report Type: 
  Country: None (occurrence: None)
  Receive Date: 20111214
  Receipt Date: 20111206
  Transmission Date: 20120403
  Serious: No
  Sender: FDA-Public Use
  Company Number: US-AMGEN-USASP2011055122

PATIENT
  Age: 62 Year
  Sex: Female

DRUGS (1)
  1. ENBREL [Suspect]
     Indication: PSORIATIC ARTHROPATHY
     Dosage: 50 MG, QWK
     Dates: start: 20100128

REACTIONS (6)
  - MALAISE [None]
  - INJECTION SITE HAEMATOMA [None]
  - NASAL CONGESTION [None]
  - THROAT IRRITATION [None]
  - UPPER RESPIRATORY TRACT CONGESTION [None]
  - HEADACHE [None]
